FAERS Safety Report 5499566-2 (Version None)
Quarter: 2007Q4

REPORT INFORMATION
  Report Type: 
  Country: None (occurrence: None)
  Receive Date: 20071026
  Receipt Date: 20071018
  Transmission Date: 20080405
  Serious: Yes (Hospitalization, Other)
  Sender: FDA-Public Use
  Company Number: US-ELI_LILLY_AND_COMPANY-US200710004639

PATIENT
  Age: 58 Year
  Sex: Female

DRUGS (3)
  1. HUMULIN N [Suspect]
     Indication: DIABETES MELLITUS
     Dosage: 35 U, 2/D
     Dates: start: 19960101
  2. HUMULIN N [Suspect]
     Dosage: 35 U, 2/D
     Dates: start: 19960101
  3. HUMULIN R [Suspect]
     Indication: DIABETES MELLITUS
     Dosage: UNK, AS NEEDED

REACTIONS (7)
  - ANXIETY [None]
  - BLOOD GLUCOSE INCREASED [None]
  - CEREBROVASCULAR ACCIDENT [None]
  - HYPOAESTHESIA FACIAL [None]
  - MALAISE [None]
  - THROAT TIGHTNESS [None]
  - TREMOR [None]
